FAERS Safety Report 6671646-5 (Version None)
Quarter: 2010Q2

REPORT INFORMATION
  Report Type: 
  Country: None (occurrence: None)
  Receive Date: 20100407
  Receipt Date: 20100327
  Transmission Date: 20101027
  Serious: No
  Sender: FDA-Public Use
  Company Number: US-B.I. PHARMACEUTICALS,INC./RIDGEFIELD-2010-BP-03619BP

PATIENT
  Sex: Male

DRUGS (4)
  1. MIRAPEX [Suspect]
     Indication: RESTLESS LEGS SYNDROME
     Dosage: 0.25 MG
     Route: 048
  2. NIACIN [Concomitant]
     Dosage: 1000 MG
  3. FISH OIL [Concomitant]
  4. QUINAPRIL [Concomitant]
     Indication: HYPERTENSION

REACTIONS (1)
  - AGITATION [None]
